FAERS Safety Report 4361061-1 (Version None)
Quarter: 2004Q2

REPORT INFORMATION
  Report Type: 
  Country: None (occurrence: None)
  Receive Date: 20040517
  Receipt Date: 20040503
  Transmission Date: 20050107
  Serious: Yes (Other)
  Sender: FDA-Public Use
  Company Number: BE-JNJFOC-20040305527

PATIENT
  Age: 4 Month
  Sex: Male

DRUGS (8)
  1. CISAPRIDE (CISAPRIDE) UNSPECIFIED [Suspect]
     Indication: GASTROOESOPHAGEAL REFLUX DISEASE
     Dosage: SEE IMAGE
     Dates: end: 20030414
  2. CISAPRIDE (CISAPRIDE) UNSPECIFIED [Suspect]
     Indication: GASTROOESOPHAGEAL REFLUX DISEASE
     Dosage: SEE IMAGE
     Dates: start: 20021224
  3. CISAPRIDE (CISAPRIDE) UNSPECIFIED [Suspect]
     Indication: GASTROOESOPHAGEAL REFLUX DISEASE
     Dosage: SEE IMAGE
     Dates: start: 20030120
  4. CISAPRIDE (CISAPRIDE) UNSPECIFIED [Suspect]
     Indication: GASTROOESOPHAGEAL REFLUX DISEASE
     Dosage: SEE IMAGE
     Dates: start: 20030715
  5. TINSET (OXATOMIDE) [Concomitant]
  6. BICLAR (CLARITHROMYCIN) [Concomitant]
  7. EUKALYPTINE (ALL OTHER THERAPEUTIC PRODUCTS) [Concomitant]
  8. LYSOX (ACETYLCYSTEINE) [Concomitant]

REACTIONS (8)
  - ADENOVIRUS INFECTION [None]
  - BRONCHITIS [None]
  - DYSPNOEA [None]
  - ELECTROCARDIOGRAM QT CORRECTED INTERVAL PROLONGED [None]
  - LYMPHADENITIS [None]
  - NASOPHARYNGITIS [None]
  - TACHYCARDIA [None]
  - TESTICULAR DISORDER [None]
